FAERS Safety Report 10512652 (Version 2)
Quarter: 2015Q3

REPORT INFORMATION
  Report Type: Report from Study
  Country: AU (occurrence: AU)
  Receive Date: 20141012
  Receipt Date: 20150827
  Transmission Date: 20151125
  Serious: Yes (Hospitalization)
  Sender: FDA-Public Use
  Company Number: PHHY2014AU132867

PATIENT
  Age: 57 Year
  Sex: Female

DRUGS (1)
  1. CLOZARIL [Suspect]
     Active Substance: CLOZAPINE
     Indication: SCHIZOPHRENIA
     Dosage: 600 OT, UNK
     Route: 048
     Dates: start: 19940822

REACTIONS (7)
  - Thyroid function test abnormal [Unknown]
  - Aortic stenosis [Unknown]
  - Low density lipoprotein increased [Unknown]
  - Blood triglycerides increased [Unknown]
  - Echocardiogram abnormal [Recovered/Resolved]
  - Blood cholesterol increased [Unknown]
  - Antipsychotic drug level increased [Not Recovered/Not Resolved]

NARRATIVE: CASE EVENT DATE: 20080812
